FAERS Safety Report 10834535 (Version 1)
Quarter: 2015Q1

REPORT INFORMATION
  Report Type: Report from Study
  Country: US (occurrence: US)
  Receive Date: 20150219
  Receipt Date: 20150219
  Transmission Date: 20150721
  Serious: No
  Sender: FDA-Public Use
  Company Number: US-ABBVIE-14P-163-1208946-00

PATIENT
  Age: 31 Year
  Sex: Female

DRUGS (2)
  1. HUMIRA [Suspect]
     Active Substance: ADALIMUMAB
     Indication: COLITIS ULCERATIVE
     Dates: start: 20131205
  2. ORTHOTRYCLINE [Concomitant]
     Indication: CONTRACEPTION

REACTIONS (6)
  - Incorrect dose administered [Recovered/Resolved]
  - Tooth infection [Recovered/Resolved]
  - Device issue [Recovered/Resolved]
  - Endodontic procedure [Recovered/Resolved]
  - Device issue [Recovered/Resolved]
  - Incorrect dose administered [Recovered/Resolved]

NARRATIVE: CASE EVENT DATE: 20140214
